FAERS Safety Report 7355141-6 (Version None)
Quarter: 2011Q1

REPORT INFORMATION
  Report Type: 
  Country: None (occurrence: None)
  Receive Date: 20110311
  Receipt Date: 20110311
  Transmission Date: 20110831
  Serious: No
  Sender: FDA-Public Use
  Company Number: None

PATIENT
  Age: 69 Year
  Sex: Male
  Weight: 127.0072 kg

DRUGS (2)
  1. FLOMAX [Suspect]
  2. TAMSULOSIN HCL [Suspect]
     Indication: PROSTATIC DISORDER
     Dosage: 1 CAP PER DAY MOUTH
     Route: 048
     Dates: start: 20101022, end: 20110210

REACTIONS (7)
  - COUGH [None]
  - OROPHARYNGEAL PAIN [None]
  - PRODUCT SUBSTITUTION ISSUE [None]
  - INSOMNIA [None]
  - ABDOMINAL DISCOMFORT [None]
  - INFLUENZA LIKE ILLNESS [None]
  - PAIN [None]
